FAERS Safety Report 10207087 (Version 1)
Quarter: 2014Q2

REPORT INFORMATION
  Report Type: Spontaneous
  Country: US (occurrence: None)
  Receive Date: 20140528
  Receipt Date: 20140528
  Transmission Date: 20141212
  Serious: Yes (Life-Threatening, Other)
  Sender: FDA-Public Use
  Company Number: None

PATIENT
  Age: 17 Year
  Sex: Female
  Weight: 60.33 kg

DRUGS (1)
  1. STRIBILD [Suspect]
     Indication: HIV TEST POSITIVE
     Dosage: 150,150,200,300?30?1 TIME A DAY?MOUTH
     Route: 048
     Dates: start: 20140123

REACTIONS (17)
  - Urticaria [None]
  - Dyspnoea [None]
  - Extraocular muscle paresis [None]
  - Fatigue [None]
  - Rash [None]
  - Hypoaesthesia [None]
  - Paraesthesia [None]
  - Visual impairment [None]
  - Cough [None]
  - Chest discomfort [None]
  - Anxiety [None]
  - Insomnia [None]
  - Speech disorder [None]
  - Weight decreased [None]
  - Asthenia [None]
  - Fat redistribution [None]
  - Ulcer [None]
